FAERS Safety Report 10680207 (Version 4)
Quarter: 2016Q2

REPORT INFORMATION
  Report Type: Spontaneous
  Country: US (occurrence: US)
  Receive Date: 20141229
  Receipt Date: 20160421
  Transmission Date: 20160815
  Serious: Yes (Hospitalization, Other)
  Sender: FDA-Public Use
  Company Number: US-PFIZER INC-2014350656

PATIENT
  Age: 74 Year
  Sex: Male
  Weight: 88 kg

DRUGS (14)
  1. REVATIO [Suspect]
     Active Substance: SILDENAFIL CITRATE
     Dosage: 20 MG, 2X/DAY
     Route: 048
     Dates: start: 2007
  2. POTASSIUM CHLORIDE. [Concomitant]
     Active Substance: POTASSIUM CHLORIDE
     Indication: CARDIAC OPERATION
     Dosage: 10 MEQ, 1X/DAY
     Route: 048
     Dates: start: 2002
  3. FOLIC ACID. [Concomitant]
     Active Substance: FOLIC ACID
     Indication: CARDIAC OPERATION
     Dosage: 1 MG, 1X/DAY
     Route: 048
     Dates: start: 2002
  4. REVATIO [Suspect]
     Active Substance: SILDENAFIL CITRATE
     Dosage: 20 MG, 3X/DAY
     Route: 048
     Dates: start: 2010
  5. SIMVASTATIN. [Concomitant]
     Active Substance: SIMVASTATIN
     Indication: CARDIAC OPERATION
     Dosage: 20 MG, 1X/DAY
     Route: 048
     Dates: start: 2002
  6. LEVOXYL [Concomitant]
     Active Substance: LEVOTHYROXINE SODIUM
     Dosage: 1 DF, DAILY
     Dates: start: 2006
  7. WARFARIN [Concomitant]
     Active Substance: WARFARIN
     Dosage: UNK
     Dates: start: 2002
  8. DIXONAL [Concomitant]
     Indication: CARDIAC OPERATION
     Dosage: 1.25 MG, 1X/DAY
     Route: 048
     Dates: start: 2002
  9. ALLOPURINOL. [Concomitant]
     Active Substance: ALLOPURINOL
     Indication: CARDIAC OPERATION
     Dosage: 300 MG, 1X/DAY
     Route: 048
     Dates: start: 2002
  10. TORSEMIDE. [Concomitant]
     Active Substance: TORSEMIDE
     Dosage: 20 MG, 1X/DAY
     Dates: start: 2002
  11. SUPER B COMPLEX [Concomitant]
     Active Substance: CYANOCOBALAMIN\DEXPANTHENOL\NIACINAMIDE\PYRIDOXINE HYDROCHLORIDE\RIBOFLAVIN 5^-PHOSPHATE SODIUM\THIAMINE HYDROCHLORIDE\VITAMIN B COMPLEX
     Indication: CARDIAC OPERATION
     Dosage: UNK, 1X/DAY
     Route: 048
     Dates: start: 2002
  12. VITAMIN C [Concomitant]
     Active Substance: ASCORBIC ACID
     Indication: CARDIAC OPERATION
     Dosage: UNK, 1X/DAY
     Route: 048
     Dates: start: 2002
  13. CARVEDILOL. [Concomitant]
     Active Substance: CARVEDILOL
     Indication: CARDIAC OPERATION
     Dosage: 6.25 MG, 2X/DAY
     Route: 048
     Dates: start: 2002
  14. OMEPRAZOLE. [Concomitant]
     Active Substance: OMEPRAZOLE
     Indication: CARDIAC OPERATION
     Dosage: UNK UNK, 2X/DAY (200 CAPSULE)
     Route: 048
     Dates: start: 2002

REACTIONS (7)
  - Gallbladder disorder [Recovered/Resolved with Sequelae]
  - Visual impairment [Not Recovered/Not Resolved]
  - Condition aggravated [Not Recovered/Not Resolved]
  - Macular degeneration [Recovering/Resolving]
  - Cataract [Unknown]
  - Memory impairment [Unknown]
  - Vision blurred [Unknown]

NARRATIVE: CASE EVENT DATE: 2014
